FAERS Safety Report 4948991-4 (Version None)
Quarter: 2006Q1

REPORT INFORMATION
  Report Type: 
  Country: None (occurrence: None)
  Receive Date: 20060316
  Receipt Date: 20060306
  Transmission Date: 20060701
  Serious: Yes (Other)
  Sender: FDA-Public Use
  Company Number: 2006033277

PATIENT
  Sex: Male
  Weight: 54.8852 kg

DRUGS (4)
  1. CELEBREX [Suspect]
     Indication: ARTHRITIS
     Dosage: 200 MG (200 MG, 1 IN 1 D)
  2. VITAMINS (VITAMINS) [Concomitant]
  3. FLOMAX [Concomitant]
  4. FOSAMAX [Concomitant]

REACTIONS (9)
  - ARTHRALGIA [None]
  - ARTHRITIS [None]
  - BACK PAIN [None]
  - CARDIAC OPERATION [None]
  - CARDIAC VALVE DISEASE [None]
  - CATHETERISATION CARDIAC [None]
  - CHOLECYSTECTOMY [None]
  - DRUG INEFFECTIVE [None]
  - INSOMNIA [None]
